FAERS Safety Report 5012779-9 (Version None)
Quarter: 2006Q2

REPORT INFORMATION
  Report Type: 
  Country: None (occurrence: None)
  Receive Date: 20060530
  Receipt Date: 20060223
  Transmission Date: 20061013
  Serious: Yes (Other)
  Sender: FDA-Public Use
  Company Number: US-BRISTOL-MYERS SQUIBB COMPANY-13294723

PATIENT

DRUGS (1)
  1. ERBITUX [Suspect]
     Route: 042
     Dates: start: 20060201, end: 20060201

REACTIONS (1)
  - ANAPHYLACTIC REACTION [None]
